FAERS Safety Report 18542923 (Version 3)
Quarter: 2020Q4

REPORT INFORMATION
  Report Type: Spontaneous
  Country: US (occurrence: US)
  Receive Date: 20201124
  Receipt Date: 20201210
  Transmission Date: 20210114
  Serious: Yes (Life-Threatening, Other)
  Sender: FDA-Public Use
  Company Number: US-BIOMARINAP-US-2020-133530

PATIENT
  Age: 38 Year
  Sex: Male
  Weight: 88.44 kg

DRUGS (5)
  1. CETIRIZINE [Concomitant]
     Active Substance: CETIRIZINE HYDROCHLORIDE
     Indication: PHENYLKETONURIA
     Dosage: 10 MILLIGRAM, QD
     Route: 048
     Dates: start: 202008
  2. EPIPEN [Concomitant]
     Active Substance: EPINEPHRINE
     Indication: HYPERSENSITIVITY
     Dosage: 0.3 MILLIGRAM, PRN
     Route: 030
     Dates: start: 20200101
  3. FLUTICASONE. [Concomitant]
     Active Substance: FLUTICASONE
     Indication: HYPERSENSITIVITY
     Dosage: UNK, BID
     Route: 045
     Dates: start: 20200101
  4. PALYNZIQ [Suspect]
     Active Substance: PEGVALIASE-PQPZ
     Dosage: UNK
     Route: 058
     Dates: start: 20200210
  5. PALYNZIQ [Suspect]
     Active Substance: PEGVALIASE-PQPZ
     Indication: PHENYLKETONURIA
     Dosage: 10 MILLIGRAM, QD
     Route: 058

REACTIONS (11)
  - Gastrooesophageal reflux disease [Recovered/Resolved]
  - Heart rate increased [Recovering/Resolving]
  - Flushing [Recovered/Resolved]
  - Chest pain [Unknown]
  - Rash [Recovering/Resolving]
  - Pruritus [Recovered/Resolved]
  - Ventricular extrasystoles [Recovered/Resolved]
  - Blood pressure increased [Recovered/Resolved]
  - Throat tightness [Recovered/Resolved]
  - Tremor [Recovering/Resolving]
  - Swelling [Recovered/Resolved]

NARRATIVE: CASE EVENT DATE: 20201119
